FAERS Safety Report 10241378 (Version 1)
Quarter: 2014Q2

REPORT INFORMATION
  Report Type: Spontaneous
  Country: GR (occurrence: GR)
  Receive Date: 20140617
  Receipt Date: 20140617
  Transmission Date: 20141212
  Serious: Yes (Other)
  Sender: FDA-Public Use
  Company Number: GR-JNJFOC-20140602907

PATIENT
  Sex: Female

DRUGS (1)
  1. CAELYX [Suspect]
     Indication: METASTATIC NEOPLASM
     Route: 042

REACTIONS (3)
  - Haemorrhage [Unknown]
  - Mouth ulceration [Unknown]
  - Off label use [Unknown]
